FAERS Safety Report 17224013 (Version 11)
Quarter: 2022Q3

REPORT INFORMATION
  Report Type: Other
  Country: GB (occurrence: GB)
  Receive Date: 20200102
  Receipt Date: 20220824
  Transmission Date: 20221026
  Serious: Yes (Congenital Anomaly, Other)
  Sender: FDA-Public Use
  Company Number: GB-MACLEODS PHARMACEUTICALS US LTD-MAC2019024404

PATIENT

DRUGS (9)
  1. NEVIRAPINE [Suspect]
     Active Substance: NEVIRAPINE
     Indication: Product used for unknown indication
     Dosage: 1 COURSE OF 400 MILLIGRAM, QD, EXPOSURE DURING FIRST TRIMESTER, PROLONGED RELEASE, MATERNAL DOSE: 40
     Route: 064
     Dates: start: 2011
  2. NEVIRAPINE [Suspect]
     Active Substance: NEVIRAPINE
     Dosage: 400 MILLIGRAM, QD; 400 MILLIGRAM, DAILY (PARENTAL DOSE: 400 MG, QD)/MATERNAL DOSE: 400 MG/DAY; (MODI
     Route: 064
     Dates: start: 2011
  3. EMTRICITABINE\TENOFOVIR DISOPROXIL [Suspect]
     Active Substance: EMTRICITABINE\TENOFOVIR DISOPROXIL
     Indication: Product used for unknown indication
     Dosage: 1 DOSAGE FORM, TABLET, PRIOR TO CONCEPTION
     Route: 064
  4. EMTRICITABINE\TENOFOVIR DISOPROXIL [Suspect]
     Active Substance: EMTRICITABINE\TENOFOVIR DISOPROXIL
     Dosage: 400 MILLIGRAM, QD, PRIOR TO CONCEPTION
     Route: 064
  5. LOPINAVIR\RITONAVIR [Suspect]
     Active Substance: LOPINAVIR\RITONAVIR
     Indication: Product used for unknown indication
     Dosage: UNK, PRIOR TO CONCEPTION
     Route: 064
  6. TRUVADA [Suspect]
     Active Substance: EMTRICITABINE\TENOFOVIR DISOPROXIL FUMARATE
     Indication: Product used for unknown indication
     Dosage: 1 COURSE DURING FIRST TRIMESTER, TENOFOVIR 245MG AND EMTRICITABINE 200MG (MATERNAL DOSE 1 DF)
     Route: 064
     Dates: start: 2011
  7. VIRAMUNE [Suspect]
     Active Substance: NEVIRAPINE
     Indication: Product used for unknown indication
     Dosage: 400 MILLIGRAM, QD (MATERNAL DOSE), MAC2019024403,MAC20190
     Route: 064
  8. VIRAMUNE [Suspect]
     Active Substance: NEVIRAPINE
     Dosage: 400 MILLIGRAM, QD
     Route: 064
  9. VIRAMUNE [Suspect]
     Active Substance: NEVIRAPINE
     Dosage: 400 MILLIGRAM, QD
     Route: 064

REACTIONS (4)
  - Developmental delay [Unknown]
  - Speech disorder [Unknown]
  - Speech disorder developmental [Unknown]
  - Foetal exposure during pregnancy [Recovered/Resolved]

NARRATIVE: CASE EVENT DATE: 20181213
